FAERS Safety Report 6006798-3 (Version None)
Quarter: 2008Q4

REPORT INFORMATION
  Report Type: 
  Country: None (occurrence: None)
  Receive Date: 20081217
  Receipt Date: 20081124
  Transmission Date: 20090506
  Serious: No
  Sender: FDA-Public Use
  Company Number: US-ASTRAZENECA-2004UW18110

PATIENT
  Age: 800 Month
  Sex: Female
  Weight: 86.2 kg

DRUGS (9)
  1. CRESTOR [Suspect]
     Indication: HYPERCHOLESTEROLAEMIA
     Route: 048
     Dates: start: 20031101, end: 20040701
  2. CRESTOR [Suspect]
     Route: 048
     Dates: end: 20040817
  3. CRESTOR [Suspect]
     Route: 048
  4. CARDIZEM [Concomitant]
  5. PRILOSEC [Concomitant]
  6. HYZAAR [Concomitant]
  7. MICARDIS [Concomitant]
  8. RESTORIL [Concomitant]
  9. DARVON-N [Concomitant]

REACTIONS (5)
  - FIBROMYALGIA [None]
  - MUSCULOSKELETAL CHEST PAIN [None]
  - MYALGIA [None]
  - PAIN IN EXTREMITY [None]
  - POLYARTHRITIS [None]
